FAERS Safety Report 26196893 (Version 1)
Quarter: 2025Q4

REPORT INFORMATION
  Report Type: Spontaneous
  Country: CA (occurrence: CA)
  Receive Date: 20251224
  Receipt Date: 20251224
  Transmission Date: 20260117
  Serious: Yes (Hospitalization)
  Sender: MICRO LABS LIMITED
  Company Number: CA-MICRO LABS LIMITED-ML2025-06730

PATIENT
  Age: 80 Year
  Sex: Male

DRUGS (1)
  1. RANOLAZINE [Suspect]
     Active Substance: RANOLAZINE
     Indication: Angina pectoris
     Dosage: 500MG;ONCE DAILY
     Route: 048
     Dates: start: 20251215

REACTIONS (1)
  - Adverse event [Unknown]
